FAERS Safety Report 9074126 (Version 1)
Quarter: 2013Q1

REPORT INFORMATION
  Report Type: Report from Study
  Country: US (occurrence: US)
  Receive Date: 20130128
  Receipt Date: 20130128
  Transmission Date: 20140127
  Serious: No
  Sender: FDA-Public Use
  Company Number: US-ABBOTT-12P-163-0916805-00

PATIENT
  Age: 26 Year
  Sex: Female

DRUGS (6)
  1. HUMIRA 40 MG/0.8 ML PEN [Suspect]
     Indication: CROHN^S DISEASE
  2. ADVAIR [Concomitant]
     Indication: ASTHMA
  3. PROBIOTIC [Concomitant]
     Indication: PRODUCT USED FOR UNKNOWN INDICATION
  4. CENTRUM VITAMIN [Concomitant]
     Indication: PRODUCT USED FOR UNKNOWN INDICATION
  5. ORTHO CYCLEN [Concomitant]
     Indication: PRODUCT USED FOR UNKNOWN INDICATION
  6. CELEXA [Concomitant]
     Indication: ANXIETY

REACTIONS (1)
  - Injection site haemorrhage [Recovering/Resolving]
